FAERS Safety Report 13376152 (Version 2)
Quarter: 2017Q1

REPORT INFORMATION
  Report Type: Report from Study
  Country: TW (occurrence: TW)
  Receive Date: 20170328
  Receipt Date: 20170328
  Transmission Date: 20170429
  Serious: Yes (Death, Life-Threatening, Hospitalization)
  Sender: FDA-Public Use
  Company Number: TW-ROCHE-1590913

PATIENT
  Age: 47 Year
  Sex: Male
  Weight: 72.5 kg

DRUGS (47)
  1. LACTULOSE. [Concomitant]
     Active Substance: LACTULOSE
     Indication: PROPHYLAXIS
     Dosage: OTHER
     Route: 048
     Dates: start: 20150514, end: 20150528
  2. ADENOCOR [Concomitant]
     Indication: SUPRAVENTRICULAR TACHYCARDIA
     Route: 042
     Dates: start: 20150610, end: 20150610
  3. KALIMATE [Concomitant]
     Active Substance: CALCIUM POLYSTYRENE SULFONATE
     Indication: HYPERKALAEMIA
     Route: 048
     Dates: start: 20150615, end: 20150615
  4. PACK RED BLOOD CELLS [Concomitant]
     Route: 042
     Dates: start: 20150613, end: 20150613
  5. RASITOL [Concomitant]
     Route: 042
     Dates: start: 20150612, end: 20150613
  6. CORDARONE [Concomitant]
     Active Substance: AMIODARONE HYDROCHLORIDE
     Indication: SUPRAVENTRICULAR TACHYCARDIA
     Route: 042
     Dates: start: 20150610, end: 20150610
  7. KALIMATE [Concomitant]
     Active Substance: CALCIUM POLYSTYRENE SULFONATE
     Route: 048
     Dates: start: 20150616, end: 20150618
  8. BISACODYL. [Concomitant]
     Active Substance: BISACODYL
     Indication: CONSTIPATION
     Route: 054
     Dates: start: 20150611, end: 20150619
  9. MAGNESIUM SULFATE. [Concomitant]
     Active Substance: MAGNESIUM SULFATE
     Dosage: OTHER
     Route: 042
     Dates: start: 20150611, end: 20150611
  10. NACID (HYDROTALCITE) [Concomitant]
     Indication: PROPHYLAXIS
     Route: 048
     Dates: start: 20150505, end: 20150609
  11. SOLAXIN (CHLORZOXAZONE) [Concomitant]
     Indication: FLANK PAIN
     Route: 048
     Dates: start: 20150505, end: 20150528
  12. ADENOCOR [Concomitant]
     Route: 042
     Dates: start: 20150610, end: 20150610
  13. SENNAPUR [Concomitant]
     Indication: CONSTIPATION
     Route: 048
     Dates: start: 20150609, end: 20150619
  14. INSULIN REGULAR [Concomitant]
     Active Substance: INSULIN NOS
     Indication: HYPERKALAEMIA
     Dosage: IN D50W
     Route: 042
     Dates: start: 20150615, end: 20150615
  15. ATEZOLIZUMAB [Suspect]
     Active Substance: ATEZOLIZUMAB
     Indication: BLADDER TRANSITIONAL CELL CARCINOMA
     Dosage: MOST RECENT DOSE WAS ADMINISTERED ON 28/MAY/2015
     Route: 042
     Dates: start: 20150507
  16. TRANSAMIN [Concomitant]
     Active Substance: TRANEXAMIC ACID
     Route: 042
     Dates: start: 20150612, end: 20150619
  17. RASITOL [Concomitant]
     Indication: PROPHYLAXIS
     Route: 042
     Dates: start: 20150608, end: 20150608
  18. CORDARONE [Concomitant]
     Active Substance: AMIODARONE HYDROCHLORIDE
     Route: 042
     Dates: start: 20150610, end: 20150611
  19. NEXIUM [Concomitant]
     Active Substance: ESOMEPRAZOLE MAGNESIUM
     Indication: PROPHYLAXIS
     Route: 048
     Dates: start: 20150609, end: 20150619
  20. PRIMPERAN [Concomitant]
     Active Substance: METOCLOPRAMIDE HYDROCHLORIDE
     Indication: DYSPEPSIA
     Route: 042
     Dates: start: 20150612, end: 20150612
  21. PRIMPERAN [Concomitant]
     Active Substance: METOCLOPRAMIDE HYDROCHLORIDE
     Route: 042
     Dates: start: 20150613, end: 20150619
  22. AREDIA [Concomitant]
     Active Substance: PAMIDRONATE DISODIUM
     Indication: PROPHYLAXIS
     Route: 042
     Dates: start: 20150609, end: 20150609
  23. VITACAL (TAIWAN) [Concomitant]
     Indication: HYPOCALCAEMIA
     Dosage: OTHER
     Route: 042
     Dates: start: 20150615, end: 20150616
  24. PLATELETS [Concomitant]
     Active Substance: HUMAN PLATELET, ALLOGENIC
     Indication: PLATELET COUNT DECREASED
     Route: 042
     Dates: start: 20150612, end: 20150612
  25. NAPOSIN [Concomitant]
     Indication: FLANK PAIN
     Route: 048
     Dates: start: 20150505, end: 20150611
  26. SEROQUEL [Concomitant]
     Active Substance: QUETIAPINE FUMARATE
     Indication: AGITATION
     Route: 048
     Dates: start: 20150615, end: 20150619
  27. INSULIN REGULAR [Concomitant]
     Active Substance: INSULIN NOS
     Dosage: IN D50W
     Route: 042
     Dates: start: 20150616, end: 20150616
  28. MAGNESIUM SULFATE. [Concomitant]
     Active Substance: MAGNESIUM SULFATE
     Indication: HYPOMAGNESAEMIA
     Dosage: OTHER
     Route: 042
     Dates: start: 20150609, end: 20150609
  29. COMBIVENT [Concomitant]
     Active Substance: ALBUTEROL SULFATE\IPRATROPIUM BROMIDE
     Indication: PRODUCTIVE COUGH
     Route: 055
     Dates: start: 20150607, end: 20150609
  30. FUCIDIN [Concomitant]
     Active Substance: FUSIDIC ACID
     Indication: DERMATITIS BULLOUS
     Route: 062
     Dates: start: 20150614, end: 20150619
  31. LACTULOSE. [Concomitant]
     Active Substance: LACTULOSE
     Indication: CONSTIPATION
     Dosage: OTHER
     Route: 048
     Dates: start: 20150615, end: 20150619
  32. TRANSAMIN [Concomitant]
     Active Substance: TRANEXAMIC ACID
     Route: 042
     Dates: start: 20150612, end: 20150612
  33. RASITOL [Concomitant]
     Route: 042
     Dates: start: 20150611, end: 20150611
  34. ADRENALINE [Concomitant]
     Active Substance: EPINEPHRINE
     Indication: HYPOTENSION
     Route: 042
     Dates: start: 20150610, end: 20150610
  35. DIPHENHYDRAMINE HCL [Concomitant]
     Active Substance: DIPHENHYDRAMINE HYDROCHLORIDE
     Indication: PROPHYLAXIS
     Route: 042
     Dates: start: 20150507, end: 20150528
  36. TRANSAMIN [Concomitant]
     Active Substance: TRANEXAMIC ACID
     Indication: HAEMOPTYSIS
     Route: 048
     Dates: start: 20150528, end: 20150612
  37. PARAMOL (ACETAMINOPHEN) [Concomitant]
     Indication: FLANK PAIN
     Route: 065
     Dates: start: 20150407, end: 20150414
  38. PARAMOL (ACETAMINOPHEN) [Concomitant]
     Indication: PYREXIA
     Route: 048
     Dates: start: 20150616, end: 20150619
  39. NIMBEX (TAIWAN) [Concomitant]
     Indication: SEDATION
     Route: 042
     Dates: start: 20150618, end: 20150619
  40. RELAXIN [Concomitant]
     Active Substance: RELAXIN PORCINE
     Indication: ENDOTRACHEAL INTUBATION
     Route: 042
     Dates: start: 20150610, end: 20150610
  41. PACK RED BLOOD CELLS [Concomitant]
     Indication: ANAEMIA
     Route: 042
     Dates: start: 20150607, end: 20150607
  42. INDOMETHACIN. [Concomitant]
     Active Substance: INDOMETHACIN
     Indication: FLANK PAIN
     Route: 062
     Dates: start: 20150513, end: 20150527
  43. KALIMATE [Concomitant]
     Active Substance: CALCIUM POLYSTYRENE SULFONATE
     Route: 048
     Dates: start: 20150615, end: 20150616
  44. DULCOLAX (BISACODYL) [Concomitant]
     Active Substance: BISACODYL
     Indication: CONSTIPATION PROPHYLAXIS
     Route: 048
     Dates: start: 20150604, end: 20150611
  45. INSULIN REGULAR [Concomitant]
     Active Substance: INSULIN NOS
     Dosage: IN D50W
     Route: 042
     Dates: start: 20150616, end: 20150616
  46. PACK RED BLOOD CELLS [Concomitant]
     Route: 042
     Dates: start: 20150611, end: 20150611
  47. PLATELETS [Concomitant]
     Active Substance: HUMAN PLATELET, ALLOGENIC
     Route: 042
     Dates: start: 20150618, end: 20150618

REACTIONS (3)
  - Septic shock [Not Recovered/Not Resolved]
  - Back pain [Not Recovered/Not Resolved]
  - Respiratory failure [Fatal]

NARRATIVE: CASE EVENT DATE: 20150514
